FAERS Safety Report 23027743 (Version 1)
Quarter: 2023Q4

REPORT INFORMATION
  Report Type: Report from Study
  Country: ZA (occurrence: None)
  Receive Date: 20231004
  Receipt Date: 20231004
  Transmission Date: 20240109
  Serious: Yes (Hospitalization)
  Sender: FDA-Public Use
  Company Number: 2023A220793

PATIENT
  Age: 28 Year
  Sex: Female

DRUGS (2)
  1. BUDESONIDE\FORMOTEROL [Suspect]
     Active Substance: BUDESONIDE\FORMOTEROL
     Indication: Asthma
     Dosage: 4.5UG/INHAL, UNKNOWN UNKNOWN
     Route: 055
  2. FLUTICASONE OTC TEVA [Concomitant]
     Indication: Asthma
     Dosage: 50UG/INHAL
     Route: 055

REACTIONS (2)
  - Bipolar disorder [Unknown]
  - Mental disorder [Unknown]
